FAERS Safety Report 19519020 (Version 1)
Quarter: 2021Q3

REPORT INFORMATION
  Report Type: Spontaneous
  Country: US (occurrence: US)
  Receive Date: 20210712
  Receipt Date: 20210712
  Transmission Date: 20211014
  Serious: No
  Sender: FDA-Public Use
  Company Number: US-MYLANLABS-2021M1038909

PATIENT
  Sex: Female

DRUGS (1)
  1. WIXELA INHUB [Suspect]
     Active Substance: FLUTICASONE PROPIONATE\SALMETEROL XINAFOATE
     Indication: ASTHMA
     Dosage: TWO PUFFS A DAY
     Route: 055
     Dates: start: 202001

REACTIONS (2)
  - Circumstance or information capable of leading to medication error [Not Recovered/Not Resolved]
  - Device issue [Not Recovered/Not Resolved]
